FAERS Safety Report 16079389 (Version 1)
Quarter: 2019Q1

REPORT INFORMATION
  Report Type: Spontaneous
  Country: US (occurrence: US)
  Receive Date: 20190315
  Receipt Date: 20190315
  Transmission Date: 20190418
  Serious: No
  Sender: FDA-Public Use
  Company Number: US-B.I. PHARMACEUTICALS,INC./RIDGEFIELD-2019-BI-006231

PATIENT
  Sex: Female

DRUGS (3)
  1. OFEV [Suspect]
     Active Substance: NINTEDANIB
     Indication: IDIOPATHIC PULMONARY FIBROSIS
     Route: 048
     Dates: start: 20190109, end: 20190205
  2. OFEV [Suspect]
     Active Substance: NINTEDANIB
     Route: 048
     Dates: start: 20190226
  3. OFEV [Suspect]
     Active Substance: NINTEDANIB
     Route: 042
     Dates: start: 20190206

REACTIONS (6)
  - Decreased appetite [Unknown]
  - Diarrhoea [Unknown]
  - Nausea [Unknown]
  - Abdominal pain upper [Unknown]
  - Gastrooesophageal reflux disease [Unknown]
  - Hepatic enzyme increased [Unknown]
